FAERS Safety Report 8988379 (Version 1)
Quarter: 2012Q4

REPORT INFORMATION
  Report Type: Spontaneous
  Country: US (occurrence: None)
  Receive Date: 20121220
  Receipt Date: 20121220
  Transmission Date: 20130627
  Serious: Yes (Hospitalization)
  Sender: FDA-Public Use
  Company Number: None

PATIENT
  Age: 84 Year
  Sex: Male

DRUGS (1)
  1. ADCIRCA [Suspect]
     Indication: PRIMARY PULMONARY HYPERTENSION
     Route: 048
     Dates: start: 20071107

REACTIONS (1)
  - Fluid retention [None]
